FAERS Safety Report 9727971 (Version 1)
Quarter: 2013Q4

REPORT INFORMATION
  Report Type: Spontaneous
  Country: FR (occurrence: FR)
  Receive Date: 20131204
  Receipt Date: 20131204
  Transmission Date: 20140711
  Serious: Yes (Hospitalization)
  Sender: FDA-Public Use
  Company Number: FR-PAR PHARMACEUTICAL, INC-2013SCPR007808

PATIENT
  Sex: 0

DRUGS (2)
  1. IBUPROFEN [Suspect]
     Indication: PYREXIA
     Dosage: 2.4 G, / DAY
     Route: 048
  2. IBUPROFEN [Suspect]
     Indication: CHEST PAIN

REACTIONS (1)
  - Lung abscess [Recovered/Resolved]
